FAERS Safety Report 6451706-4 (Version None)
Quarter: 2009Q4

REPORT INFORMATION
  Report Type: 
  Country: None (occurrence: None)
  Receive Date: 20091123
  Receipt Date: 20090813
  Transmission Date: 20100525
  Serious: Yes (Death)
  Sender: FDA-Public Use
  Company Number: TW-BAXTER-2009BH011180

PATIENT
  Age: 70 Year
  Sex: Male

DRUGS (9)
  1. DIANEAL [Suspect]
     Indication: PERITONEAL DIALYSIS
     Route: 033
     Dates: start: 20090601
  2. DIANEAL [Suspect]
     Route: 033
     Dates: start: 20090501, end: 20090601
  3. DIANEAL [Suspect]
     Route: 033
     Dates: start: 20090401, end: 20090501
  4. DIANEAL [Suspect]
     Indication: PERITONEAL DIALYSIS
     Route: 033
     Dates: start: 20090601
  5. DIANEAL [Suspect]
     Route: 033
     Dates: start: 20090501, end: 20090601
  6. DIANEAL [Suspect]
     Route: 033
     Dates: start: 20090401, end: 20090501
  7. EXTRANEAL [Suspect]
     Indication: PERITONEAL DIALYSIS
     Route: 033
     Dates: start: 20090601
  8. EXTRANEAL [Suspect]
     Route: 033
     Dates: start: 20090501, end: 20090601
  9. EXTRANEAL [Suspect]
     Route: 033
     Dates: start: 20090401, end: 20090501

REACTIONS (1)
  - SEPSIS [None]
